FAERS Safety Report 10467095 (Version 2)
Quarter: 2014Q3

REPORT INFORMATION
  Report Type: Spontaneous
  Country: US (occurrence: US)
  Receive Date: 20140922
  Receipt Date: 20140922
  Transmission Date: 20150326
  Serious: Yes (Hospitalization)
  Sender: FDA-Public Use
  Company Number: US-ACTELION-A-NJ2014-104872

PATIENT
  Age: 58 Year
  Sex: Female

DRUGS (3)
  1. OPSUMIT [Suspect]
     Active Substance: MACITENTAN
     Indication: COR PULMONALE CHRONIC
     Dosage: 10 MG, QD
     Route: 048
     Dates: start: 20140721
  2. VELETRI [Suspect]
     Active Substance: EPOPROSTENOL
     Indication: COR PULMONALE CHRONIC
     Dosage: 26.60 NG/KG, PER MIN
     Route: 042
     Dates: start: 20140531
  3. ADCIRCA [Concomitant]
     Active Substance: TADALAFIL

REACTIONS (13)
  - Catheter site inflammation [Unknown]
  - Catheter site erythema [Unknown]
  - Catheter site discharge [Unknown]
  - Catheter site infection [Unknown]
  - Catheter site rash [Unknown]
  - Catheter site vesicles [Unknown]
  - Device malfunction [Unknown]
  - Catheter site pruritus [Unknown]
  - Pruritus generalised [Unknown]
  - Catheter site pain [Unknown]
  - Catheter site swelling [Unknown]
  - Chest pain [Unknown]
  - Scleroderma [Unknown]

NARRATIVE: CASE EVENT DATE: 20140828
